FAERS Safety Report 9900857 (Version 2)
Quarter: 2014Q2

REPORT INFORMATION
  Report Type: Spontaneous
  Country: US (occurrence: US)
  Receive Date: 20140217
  Receipt Date: 20140618
  Transmission Date: 20141212
  Serious: Yes (Hospitalization)
  Sender: FDA-Public Use
  Company Number: US-009507513-1402USA005059

PATIENT
  Sex: Female

DRUGS (1)
  1. NUVARING [Suspect]
     Dosage: UNK
     Route: 067

REACTIONS (8)
  - Vena cava filter insertion [Not Recovered/Not Resolved]
  - Deep vein thrombosis [Unknown]
  - Migraine [Unknown]
  - Urinary tract infection [Unknown]
  - Depression [Unknown]
  - Back pain [Unknown]
  - Vaginal discharge [Unknown]
  - Hypomenorrhoea [Unknown]
